FAERS Safety Report 11713424 (Version 2)
Quarter: 2015Q4

REPORT INFORMATION
  Report Type: Spontaneous
  Country: FR (occurrence: FR)
  Receive Date: 20151109
  Receipt Date: 20151223
  Transmission Date: 20160304
  Serious: Yes (Hospitalization, Other)
  Sender: FDA-Public Use
  Company Number: FR-ABBVIE-15K-056-1495551-00

PATIENT
  Age: 60 Year
  Sex: Female

DRUGS (1)
  1. HUMIRA [Suspect]
     Active Substance: ADALIMUMAB
     Indication: PSORIATIC ARTHROPATHY
     Dosage: FREQUENCY TIME OF LESS THAN 14 DAYS
     Route: 058

REACTIONS (4)
  - Off label use [Unknown]
  - Acute kidney injury [Not Recovered/Not Resolved]
  - Atrial fibrillation [Not Recovered/Not Resolved]
  - IgA nephropathy [Unknown]

NARRATIVE: CASE EVENT DATE: 201506
